FAERS Safety Report 18504974 (Version 2)
Quarter: 2020Q4

REPORT INFORMATION
  Report Type: Report from Study
  Country: DE (occurrence: DE)
  Receive Date: 20201115
  Receipt Date: 20201201
  Transmission Date: 20210114
  Serious: Yes (Hospitalization)
  Sender: FDA-Public Use
  Company Number: DE-CELLTRION INC.-2020DE028909

PATIENT

DRUGS (11)
  1. TRAMAL [Concomitant]
     Active Substance: TRAMADOL
     Dosage: 1X100 MG TRAMAL LONG/DAY
  2. SAROTEN [Concomitant]
     Active Substance: AMITRIPTYLINE
     Dosage: 1X25 MG SAROTEN/DAY
  3. PREDNISOLON [PREDNISOLONE] [Concomitant]
     Active Substance: PREDNISOLONE
     Dosage: 10 MILLIGRAM (1X10 MG PREDNISOLON/DAY)
  4. VIGANTOLETTEN [Concomitant]
     Active Substance: CHOLECALCIFEROL
     Dosage: 1X1000 IE VIGANTOLETTEN/DAY
  5. NOVALGIN (METAMIZOLE SODIUM) [Concomitant]
     Active Substance: METAMIZOLE SODIUM
     Dosage: 30 DROPS. NOVALGIN B.B.
  6. CALCITROL [CALCITRIOL] [Concomitant]
     Active Substance: CALCITRIOL
     Dosage: 3X950 MG CALCITROL/TAG
  7. PANTOZOL [Concomitant]
     Active Substance: PANTOPRAZOLE SODIUM
     Dosage: 1X40 MG PANTOZOL/DAY
  8. CT-P13 [Suspect]
     Active Substance: INFLIXIMAB-DYYB
     Indication: PRODUCT USED FOR UNKNOWN INDICATION
     Dosage: 120 MILLIGRAM, EVERY 2 WEEKS
     Route: 058
     Dates: start: 202003
  9. REMICADE [Concomitant]
     Active Substance: INFLIXIMAB
     Dosage: 165 MILLIGRAM, EVEY 8 WEEKS (STOP DATE: 06FEB2020)
  10. ARCOXIA [Concomitant]
     Active Substance: ETORICOXIB
     Dosage: 1X90 MG ARCOXIA/DAY
  11. PREGABALIN. [Concomitant]
     Active Substance: PREGABALIN
     Dosage: 4X75 MG PREGABALIN/DAY

REACTIONS (4)
  - Syncope [Recovered/Resolved]
  - Fall [Recovered/Resolved]
  - Urinary tract infection [Not Recovered/Not Resolved]
  - Rheumatoid arthritis [Recovered/Resolved]

NARRATIVE: CASE EVENT DATE: 20200413
